FAERS Safety Report 12619719 (Version 3)
Quarter: 2016Q4

REPORT INFORMATION
  Report Type: Report from Study
  Country: JP (occurrence: JP)
  Receive Date: 20160803
  Receipt Date: 20161202
  Transmission Date: 20170207
  Serious: Yes (Death, Other)
  Sender: FDA-Public Use
  Company Number: JP-BRISTOL-MYERS SQUIBB COMPANY-BMS-2016-061928

PATIENT
  Age: 82 Year
  Sex: Male
  Weight: 53 kg

DRUGS (2)
  1. APIXABAN [Suspect]
     Active Substance: APIXABAN
     Indication: CEREBROVASCULAR ACCIDENT PROPHYLAXIS
     Dosage: 2.5 MG, BID
     Route: 048
     Dates: start: 20140715, end: 20160426
  2. ALDACTONE [Concomitant]
     Active Substance: SPIRONOLACTONE
     Indication: CARDIAC FAILURE
     Dosage: 25 MG, QD
     Route: 048
     Dates: start: 20140804, end: 20160425

REACTIONS (3)
  - Ileus [Fatal]
  - Metabolic acidosis [Unknown]
  - Shock [Unknown]

NARRATIVE: CASE EVENT DATE: 20160425
